FAERS Safety Report 9919354 (Version 3)
Quarter: 2014Q2

REPORT INFORMATION
  Report Type: Spontaneous
  Country: US (occurrence: US)
  Receive Date: 20140224
  Receipt Date: 20140404
  Transmission Date: 20141212
  Serious: Yes (Other)
  Sender: FDA-Public Use
  Company Number: US-009507513-1402USA006294

PATIENT
  Age: 76 Year
  Sex: Female
  Weight: 64.4 kg

DRUGS (21)
  1. ZOCOR [Suspect]
     Indication: BLOOD CHOLESTEROL INCREASED
     Dosage: 10 MG, QD
     Route: 048
     Dates: start: 2011, end: 20120131
  2. ZOCOR [Suspect]
     Indication: TRANSIENT ISCHAEMIC ATTACK
  3. PLAVIX [Concomitant]
     Dosage: 75 MG, QD (1 TABLET(S) DAILY)
     Route: 048
  4. SYNTHROID [Concomitant]
     Dosage: 0.075 MG (1 TABLET(S) DAILY)
     Route: 048
  5. AMBIEN [Concomitant]
     Dosage: 10 MG TABLET 1 TAB(S) HS PRN
     Route: 048
  6. CLONIDINE HYDROCHLORIDE [Concomitant]
     Dosage: 0.1 MG, QD (1 TAB(S) QD)
     Route: 048
  7. AMITRIPTYLINE HYDROCHLORIDE [Concomitant]
     Dosage: 10 MG, HS (1 TABLET(S) AT BEDTIME)
     Route: 048
  8. POLYETHYLENE GLYCOL 3350 [Concomitant]
     Dosage: UD
     Route: 048
  9. PREMARIN [Concomitant]
     Dosage: USE WEEKLY AS DIRECTED
  10. ASPIRIN [Concomitant]
     Dosage: 81 MG, QOD (1 TABLET(S) BY MOUTH QOD)
     Route: 048
  11. FLAXSEED [Concomitant]
  12. VITAMINS (UNSPECIFIED) [Concomitant]
  13. S-CAINE [Concomitant]
  14. CINOBAC [Concomitant]
  15. DEMEROL HYDROCHLORIDE [Concomitant]
  16. GLUCAGON [Concomitant]
  17. HYDRALAZINE HYDROCHLORIDE [Concomitant]
  18. KEFLEX [Concomitant]
  19. KENALOG [Concomitant]
  20. VALIUM [Concomitant]
  21. FLUCONAZOLE [Concomitant]

REACTIONS (50)
  - Appendicectomy [Unknown]
  - Surgery [Unknown]
  - Renal cancer [Unknown]
  - Spinal laminectomy [Unknown]
  - Cerebrovascular accident [Unknown]
  - Skin cancer [Unknown]
  - Cardiac arrest [Unknown]
  - Pain in extremity [Unknown]
  - Diabetic neuropathy [Unknown]
  - Hypothyroidism [Unknown]
  - Vertigo positional [Unknown]
  - Vision blurred [Unknown]
  - Temperature intolerance [Unknown]
  - Essential hypertension [Unknown]
  - Arthropod bite [Unknown]
  - Type V hyperlipidaemia [Unknown]
  - Osteopenia [Unknown]
  - Vulvovaginal mycotic infection [Unknown]
  - Hypotension [Unknown]
  - Bradycardia [Unknown]
  - Hypersomnia [Unknown]
  - Swelling [Unknown]
  - Deep vein thrombosis [Unknown]
  - Hyperlipidaemia [Unknown]
  - Mitral valve stenosis [Unknown]
  - Cholelithiasis [Unknown]
  - Large intestine polyp [Unknown]
  - Gastric polyps [Unknown]
  - Diverticulitis [Unknown]
  - Nephrolithiasis [Unknown]
  - Urinary incontinence [Unknown]
  - Pain [Unknown]
  - Lower limb fracture [Unknown]
  - Transient ischaemic attack [Unknown]
  - Gastric disorder [Unknown]
  - Adenotonsillectomy [Unknown]
  - Biopsy colon [Unknown]
  - Biopsy skin [Unknown]
  - Biopsy kidney [Unknown]
  - Biopsy ovary [Unknown]
  - Uterine dilation and curettage [Unknown]
  - Explorative laparotomy [Unknown]
  - Female sterilisation [Unknown]
  - Muscular weakness [Recovering/Resolving]
  - Arthralgia [Unknown]
  - Myalgia [Unknown]
  - Malaise [Unknown]
  - Insomnia [Unknown]
  - Dizziness [Unknown]
  - Rash [Unknown]
